FAERS Safety Report 5133739-3 (Version None)
Quarter: 2006Q4

REPORT INFORMATION
  Report Type: 
  Country: None (occurrence: None)
  Receive Date: 20061024
  Receipt Date: 20061016
  Transmission Date: 20070319
  Serious: Yes (Hospitalization)
  Sender: FDA-Public Use
  Company Number: ES-AVENTIS-200620794GDDC

PATIENT
  Age: 53 Year
  Sex: Female

DRUGS (1)
  1. PEITEL [Suspect]
     Route: 061

REACTIONS (1)
  - DERMATITIS CONTACT [None]
